FAERS Safety Report 18056944 (Version 4)
Quarter: 2021Q3

REPORT INFORMATION
  Report Type: Spontaneous
  Country: US (occurrence: US)
  Receive Date: 20200722
  Receipt Date: 20210819
  Transmission Date: 20211014
  Serious: Yes (Other)
  Sender: FDA-Public Use
  Company Number: US-GILEAD-2020-0473967

PATIENT
  Sex: Male

DRUGS (4)
  1. ATRIPLA [Suspect]
     Active Substance: EFAVIRENZ\EMTRICITABINE\TENOFOVIR DISOPROXIL FUMARATE
     Indication: HIV INFECTION
     Dosage: UNK
     Route: 048
     Dates: start: 2018, end: 201912
  2. STRIBILD [Suspect]
     Active Substance: COBICISTAT\ELVITEGRAVIR\EMTRICITABINE\TENOFOVIR DISOPROXIL FUMARATE
     Indication: HIV INFECTION
     Dosage: UNK
     Route: 048
     Dates: start: 2017, end: 2018
  3. GENVOYA [Concomitant]
     Active Substance: COBICISTAT\ELVITEGRAVIR\EMTRICITABINE\TENOFOVIR ALAFENAMIDE FUMARATE
  4. VIREAD [Suspect]
     Active Substance: TENOFOVIR DISOPROXIL FUMARATE
     Indication: HIV INFECTION
     Dosage: UNK
     Route: 048
     Dates: start: 2018, end: 202001

REACTIONS (8)
  - Multiple fractures [Unknown]
  - Bone density decreased [Not Recovered/Not Resolved]
  - Bone loss [Unknown]
  - Renal impairment [Not Recovered/Not Resolved]
  - Tooth fracture [Not Recovered/Not Resolved]
  - Chronic kidney disease [Unknown]
  - Osteonecrosis [Unknown]
  - Renal failure [Unknown]

NARRATIVE: CASE EVENT DATE: 2018
